FAERS Safety Report 7141692-6 (Version None)
Quarter: 2010Q4

REPORT INFORMATION
  Report Type: 
  Country: None (occurrence: None)
  Receive Date: 20101124
  Receipt Date: 20101109
  Transmission Date: 20110411
  Serious: Yes (Hospitalization)
  Sender: FDA-Public Use
  Company Number: MSER20100030

PATIENT
  Age: 57 Year
  Sex: Female

DRUGS (5)
  1. MORPHINE SULFATE [Suspect]
     Indication: PAIN
     Dosage: 20 MG, 1 IN 1 D, ORAL; 25 MG, DAILY, ORAL
     Route: 048
  2. DICLOFENAC (DICLOFENAC) (75 MILLIGRAM, UNKNOWN) (DICLOFENAC) [Concomitant]
  3. BERAPROST SODIUM (BERAPROST SODIUM) (120 MICROGRAM, UNKNOWN) (BERAPROS [Concomitant]
  4. PREDNISOLONE (PREDNISOLONE) (5 MILLIGRAM, UNKNOWN) (PREDNISOLONE) [Concomitant]
  5. NIFEDIPINE (NIFEDIPINE) (20 MILLIGRAM, UNKNOWN) (NIFEDIPINE) [Concomitant]

REACTIONS (2)
  - CHOLECYSTITIS ACUTE [None]
  - TOE AMPUTATION [None]
